FAERS Safety Report 21019006 (Version 1)
Quarter: 2022Q2

REPORT INFORMATION
  Report Type: Report from Study
  Country: CA (occurrence: CA)
  Receive Date: 20220628
  Receipt Date: 20220628
  Transmission Date: 20220721
  Serious: Yes (Hospitalization, Other)
  Sender: FDA-Public Use
  Company Number: CA-JCAR017-FOL-001-1511001-20210504-0002SG

PATIENT
  Age: 59 Year
  Sex: Male
  Weight: 68 kg

DRUGS (22)
  1. CYCLOPHOSPHAMIDE [Suspect]
     Active Substance: CYCLOPHOSPHAMIDE
     Indication: Follicular lymphoma
     Dosage: 540 MG X 1 X 1 DAYS
     Route: 042
     Dates: start: 20210421, end: 20210423
  2. FLUDARABINE [Suspect]
     Active Substance: FLUDARABINE PHOSPHATE
     Indication: Follicular lymphoma
     Dosage: 54 MG X 1 X 1 DAYS
     Route: 042
     Dates: start: 20210421, end: 20210423
  3. DEXAMETHASONE [Concomitant]
     Active Substance: DEXAMETHASONE
     Indication: Cytokine release syndrome
     Dates: start: 20210503, end: 20210505
  4. LOPERAMIDE [Concomitant]
     Active Substance: LOPERAMIDE
     Indication: Diarrhoea
     Dosage: FREQUENCY TEXT: PRN?2 MG X PRN
     Route: 048
     Dates: start: 202004
  5. ALLOPURINOL [Concomitant]
     Active Substance: ALLOPURINOL
     Indication: Prophylaxis
     Dosage: 300 MG X 1 X 1 DAYS
     Route: 048
     Dates: start: 20210420, end: 20210503
  6. BENADRYL [Concomitant]
     Active Substance: DIPHENHYDRAMINE HYDROCHLORIDE
     Indication: Prophylaxis
     Dosage: 50 MG X 1 X 1 DAYS
     Route: 042
     Dates: start: 20210427, end: 20210427
  7. FLUCONAZOLE [Concomitant]
     Active Substance: FLUCONAZOLE
     Indication: Infection prophylaxis
     Dosage: 400 MG X 1 X 1 DAYS
     Route: 048
     Dates: start: 20210502, end: 20210509
  8. KITRIL [Concomitant]
     Indication: Prophylaxis of nausea and vomiting
     Dosage: 1 MG X 1 X 1 DAYS
     Route: 042
     Dates: start: 20210421, end: 20210423
  9. KYTRIL [Concomitant]
     Active Substance: GRANISETRON HYDROCHLORIDE
     Indication: Prophylaxis
     Dosage: 1 MG X 1 X 1 DAYS
     Route: 042
     Dates: start: 20210427, end: 20210427
  10. KYTRIL [Concomitant]
     Active Substance: GRANISETRON HYDROCHLORIDE
     Dosage: FREQUENCY TEXT: PRN?1 MG X PRN
     Route: 042
     Dates: start: 20210504, end: 20210510
  11. LEVETIRACETAM [Concomitant]
     Active Substance: LEVETIRACETAM
     Indication: Prophylaxis
     Dosage: 750 MG X 2 X 1 DAYS
     Route: 048
     Dates: start: 20210426
  12. OXAZEPAM [Concomitant]
     Active Substance: OXAZEPAM
     Indication: Insomnia
     Dosage: FREQUENCY TEXT: PRN?15 MG X PRN
     Route: 048
     Dates: start: 20200325
  13. PANTOPRAZOLE [Concomitant]
     Active Substance: PANTOPRAZOLE
     Indication: Prophylaxis
     Dosage: 40 MG X 1 X 1 DAYS
     Route: 048
     Dates: start: 20210421, end: 20210513
  14. VALTREX [Concomitant]
     Active Substance: VALACYCLOVIR HYDROCHLORIDE
     Indication: Infection prophylaxis
     Dosage: 500 MG X 2 X 1 DAYS
     Route: 048
     Dates: start: 20210421
  15. ACETAMINOPHEN [Concomitant]
     Active Substance: ACETAMINOPHEN
     Indication: Prophylaxis
     Route: 048
     Dates: start: 20210427, end: 20210503
  16. ACETAMINOPHEN [Concomitant]
     Active Substance: ACETAMINOPHEN
     Indication: Tension headache
  17. ACETAMINOPHEN [Concomitant]
     Active Substance: ACETAMINOPHEN
     Indication: Cytokine release syndrome
  18. METOCLOPRAMIDE [Concomitant]
     Active Substance: METOCLOPRAMIDE
     Indication: Nausea
     Route: 048
     Dates: start: 20210503
  19. PROCHLORPERAZINE [Concomitant]
     Active Substance: PROCHLORPERAZINE
     Indication: Nausea
     Route: 048
     Dates: start: 20210421, end: 20210510
  20. TRAMADOL [Concomitant]
     Active Substance: TRAMADOL
     Indication: Headache
     Route: 042
     Dates: start: 20210503, end: 20210503
  21. SODIUM CHLORIDE [Concomitant]
     Active Substance: SODIUM CHLORIDE
     Indication: Cytokine release syndrome
     Route: 040
     Dates: start: 20210502, end: 20210502
  22. PIPERACILLIN SODIUM\TAZOBACTAM SODIUM [Concomitant]
     Active Substance: PIPERACILLIN SODIUM\TAZOBACTAM SODIUM
     Indication: Infection prophylaxis
     Dates: start: 20210430, end: 20210508

REACTIONS (1)
  - Neurotoxicity [Recovered/Resolved]

NARRATIVE: CASE EVENT DATE: 20210504
